FAERS Safety Report 6676079-3 (Version None)
Quarter: 2010Q2

REPORT INFORMATION
  Report Type: 
  Country: None (occurrence: None)
  Receive Date: 20100412
  Receipt Date: 20100113
  Transmission Date: 20101027
  Serious: Yes (Other)
  Sender: FDA-Public Use
  Company Number: GR-BAYER-200942411GPV

PATIENT
  Age: 69 Year
  Sex: Male

DRUGS (6)
  1. REFLUDAN [Suspect]
     Indication: HEPARIN-INDUCED THROMBOCYTOPENIA
     Route: 042
     Dates: start: 20090610, end: 20090616
  2. LEPUR [Concomitant]
     Indication: DRUG USE FOR UNKNOWN INDICATION
  3. OLMESARTAN MEDOXOMIL [Concomitant]
     Indication: DRUG USE FOR UNKNOWN INDICATION
  4. FRUMIL [Concomitant]
     Indication: DRUG USE FOR UNKNOWN INDICATION
  5. ZURCASOL [Concomitant]
     Indication: DRUG USE FOR UNKNOWN INDICATION
  6. LACIPIL [Concomitant]
     Indication: DRUG USE FOR UNKNOWN INDICATION

REACTIONS (1)
  - ANGINA PECTORIS [None]
